FAERS Safety Report 5398556-8 (Version None)
Quarter: 2007Q3

REPORT INFORMATION
  Report Type: 
  Country: None (occurrence: None)
  Receive Date: 20070726
  Receipt Date: 20060609
  Transmission Date: 20080115
  Serious: No
  Sender: FDA-Public Use
  Company Number: US-AMGEN-KDL183950

PATIENT
  Sex: Female
  Weight: 58.6 kg

DRUGS (2)
  1. PROCRIT [Suspect]
     Indication: MYELODYSPLASTIC SYNDROME
     Route: 042
     Dates: start: 20060508
  2. COZAAR [Concomitant]

REACTIONS (2)
  - DIZZINESS [None]
  - HEADACHE [None]
